FAERS Safety Report 24422525 (Version 1)
Quarter: 2024Q4

REPORT INFORMATION
  Report Type: Spontaneous
  Country: US (occurrence: None)
  Receive Date: 20241009
  Receipt Date: 20241009
  Transmission Date: 20250115
  Serious: Yes (Hospitalization)
  Sender: Public
  Company Number: None

PATIENT
  Age: 82 Year
  Sex: Male
  Weight: 84 kg

DRUGS (1)
  1. VICTOZA [Suspect]
     Active Substance: LIRAGLUTIDE
     Indication: Diabetes mellitus
     Dosage: FREQUENCY : DAILY;?
     Route: 058
     Dates: start: 20221209, end: 20240627

REACTIONS (6)
  - Abdominal pain [None]
  - Abdominal distension [None]
  - Vomiting [None]
  - Pancreatitis [None]
  - Lipase increased [None]
  - Diarrhoea [None]

NARRATIVE: CASE EVENT DATE: 20240621
